FAERS Safety Report 7007725-2 (Version None)
Quarter: 2010Q3

REPORT INFORMATION
  Report Type: 
  Country: None (occurrence: None)
  Receive Date: 20100920
  Receipt Date: 20100909
  Transmission Date: 20110219
  Serious: Yes (Hospitalization)
  Sender: FDA-Public Use
  Company Number: A0880523A

PATIENT
  Age: 16 Year
  Sex: Female

DRUGS (9)
  1. SULFACETAMIDE + SULPHUR WASH (SULFACETAMIDE + SULPHUR) [Suspect]
     Indication: ACNE
     Dosage: AT NIGHT / TOPICAL
     Route: 061
  2. INFLIXIMAB [Concomitant]
  3. CYANOCOBALAMIN [Concomitant]
  4. MULTIVITAMINS + IRON [Concomitant]
  5. ZINC SALT [Concomitant]
  6. VITAMIN D [Concomitant]
  7. CHINESE MEDICATION [Concomitant]
  8. DICYCLOMINE HYDROCHLORIDE [Concomitant]
  9. ONDANSETRON HYDROCHLORIDE [Concomitant]

REACTIONS (5)
  - CONDITION AGGRAVATED [None]
  - CROHN'S DISEASE [None]
  - DEHYDRATION [None]
  - DRY SKIN [None]
  - VOMITING [None]
